FAERS Safety Report 11237994 (Version 2)
Quarter: 2015Q3

REPORT INFORMATION
  Report Type: Spontaneous
  Country: GB (occurrence: GB)
  Receive Date: 20150703
  Receipt Date: 20150716
  Transmission Date: 20151125
  Serious: Yes (Other)
  Sender: FDA-Public Use
  Company Number: GB-009507513-1507GBR000977

PATIENT
  Age: 60 Year
  Sex: Male
  Weight: 88.9 kg

DRUGS (3)
  1. ZOCOR [Suspect]
     Active Substance: SIMVASTATIN
     Indication: BLOOD CHOLESTEROL INCREASED
     Dosage: 40 MG, UNK
     Route: 048
  2. AMITRIPTYLINE HYDROCHLORIDE. [Concomitant]
     Active Substance: AMITRIPTYLINE HYDROCHLORIDE
  3. PREGABALIN. [Concomitant]
     Active Substance: PREGABALIN

REACTIONS (4)
  - Musculoskeletal pain [Not Recovered/Not Resolved]
  - Pain in extremity [Not Recovered/Not Resolved]
  - Myalgia [Not Recovered/Not Resolved]
  - Arthralgia [Not Recovered/Not Resolved]
